FAERS Safety Report 6373754-5 (Version None)
Quarter: 2009Q3

REPORT INFORMATION
  Report Type: 
  Country: None (occurrence: None)
  Receive Date: 20090924
  Receipt Date: 20090504
  Transmission Date: 20100115
  Serious: No
  Sender: FDA-Public Use
  Company Number: US-ASTRAZENECA-2009UW11387

PATIENT
  Age: 60 Year
  Sex: Male

DRUGS (6)
  1. SEROQUEL [Suspect]
     Dosage: 1000 MG
     Route: 048
  2. TEGRETOL [Interacting]
     Dosage: 1600 MG
     Route: 048
  3. ABILIFY [Concomitant]
  4. CALCIUM [Concomitant]
  5. STOOL SOFTENER [Concomitant]
  6. DAILY VITAMIN [Concomitant]

REACTIONS (3)
  - AGITATION [None]
  - DRUG INTERACTION [None]
  - LABORATORY TEST ABNORMAL [None]
